FAERS Safety Report 9678365 (Version 1)
Quarter: 2013Q4

REPORT INFORMATION
  Report Type: Spontaneous
  Country: BR (occurrence: BR)
  Receive Date: 20131108
  Receipt Date: 20131108
  Transmission Date: 20140711
  Serious: Yes (Other)
  Sender: FDA-Public Use
  Company Number: BR-BIOMARINAP-BR-2013-101868

PATIENT
  Sex: Female

DRUGS (2)
  1. ALDURAZYME [Suspect]
     Indication: MUCOPOLYSACCHARIDOSIS I
     Dosage: UNK
     Route: 042
  2. ALDURAZYME [Suspect]
     Dosage: UNK
     Route: 042
     Dates: start: 201307

REACTIONS (1)
  - Laryngeal oedema [Recovered/Resolved]
